FAERS Safety Report 11821836 (Version 1)
Quarter: 2015Q4

REPORT INFORMATION
  Report Type: Spontaneous
  Country: US (occurrence: US)
  Receive Date: 20151210
  Receipt Date: 20151210
  Transmission Date: 20160305
  Serious: No
  Sender: FDA-Public Use
  Company Number: US-JNJFOC-20150511016

PATIENT
  Age: 71 Year
  Sex: Female

DRUGS (12)
  1. ALBUTEROL SULFATE. [Concomitant]
     Active Substance: ALBUTEROL SULFATE
  2. PLAQUENIL [Concomitant]
     Active Substance: HYDROXYCHLOROQUINE SULFATE
  3. BUDESONIDE. [Concomitant]
     Active Substance: BUDESONIDE
  4. TOPROL XL [Concomitant]
     Active Substance: METOPROLOL SUCCINATE
  5. ESTRADIOL. [Concomitant]
     Active Substance: ESTRADIOL
  6. LANSOPRAZOLE. [Concomitant]
     Active Substance: LANSOPRAZOLE
  7. METFORMIN [Concomitant]
     Active Substance: METFORMIN HYDROCHLORIDE
  8. IMBRUVICA [Suspect]
     Active Substance: IBRUTINIB
     Indication: CHRONIC LYMPHOCYTIC LEUKAEMIA
     Route: 048
  9. LASIX [Concomitant]
     Active Substance: FUROSEMIDE
  10. IMBRUVICA [Suspect]
     Active Substance: IBRUTINIB
     Indication: CHRONIC LYMPHOCYTIC LEUKAEMIA
     Route: 048
     Dates: start: 20150501
  11. ALLOPURINOL. [Concomitant]
     Active Substance: ALLOPURINOL
  12. PERFOROMIST [Concomitant]
     Active Substance: FORMOTEROL FUMARATE DIHYDRATE

REACTIONS (8)
  - Atrial fibrillation [Unknown]
  - Weight increased [Not Recovered/Not Resolved]
  - Diarrhoea [Recovered/Resolved]
  - Eye contusion [Recovering/Resolving]
  - Fatigue [Not Recovered/Not Resolved]
  - Increased appetite [Not Recovered/Not Resolved]
  - Contusion [Not Recovered/Not Resolved]
  - Abdominal distension [Not Recovered/Not Resolved]

NARRATIVE: CASE EVENT DATE: 2015
